FAERS Safety Report 15547803 (Version 1)
Quarter: 2018Q4

REPORT INFORMATION
  Report Type: Spontaneous
  Country: BE (occurrence: BE)
  Receive Date: 20181024
  Receipt Date: 20181024
  Transmission Date: 20190205
  Serious: Yes (Other)
  Sender: FDA-Public Use
  Company Number: BE-PFIZER INC-2018432397

PATIENT
  Age: 60 Year
  Sex: Male

DRUGS (1)
  1. SOMAVERT [Suspect]
     Active Substance: PEGVISOMANT
     Indication: ACROMEGALY
     Dosage: UNK

REACTIONS (6)
  - Gait disturbance [Unknown]
  - Weight decreased [Unknown]
  - Hereditary neuropathic amyloidosis [Unknown]
  - Pain in extremity [Unknown]
  - Dysstasia [Unknown]
  - Hypotension [Unknown]
